FAERS Safety Report 4617242-2 (Version None)
Quarter: 2005Q1

REPORT INFORMATION
  Report Type: 
  Country: None (occurrence: None)
  Receive Date: 20050323
  Receipt Date: 20050215
  Transmission Date: 20050727
  Serious: Yes (Hospitalization)
  Sender: FDA-Public Use
  Company Number: PHRM2005FR00854

PATIENT
  Age: 4 Year
  Sex: Male

DRUGS (1)
  1. ZADITEN [Suspect]
     Indication: URTICARIA
     Dosage: 1 MG, QD
     Route: 048
     Dates: start: 20040701, end: 20050131

REACTIONS (1)
  - GRAND MAL CONVULSION [None]
